FAERS Safety Report 8726484 (Version 3)
Quarter: 2012Q4

REPORT INFORMATION
  Report Type: 
  Country: US (occurrence: US)
  Receive Date: 20120816
  Receipt Date: 20121011
  Transmission Date: 20130627
  Serious: Yes (Death, Other)
  Sender: FDA-Public Use
  Company Number: US-ACTELION-A-NJ2012-70016

PATIENT
  Age: 51 Year
  Sex: Female

DRUGS (3)
  1. VELETRI [Suspect]
     Indication: PULMONARY ARTERIAL HYPERTENSION
     Dosage: 5 ng/kg, per min
     Route: 041
     Dates: start: 20120521, end: 20121003
  2. SILDENAFIL [Concomitant]
  3. COUMADIN [Concomitant]

REACTIONS (6)
  - Death [Fatal]
  - Liver disorder [Unknown]
  - Confusional state [Unknown]
  - Decreased appetite [Unknown]
  - Concomitant disease aggravated [Unknown]
  - Nausea [Unknown]
